FAERS Safety Report 9216749 (Version 1)
Quarter: 2013Q2

REPORT INFORMATION
  Report Type: Spontaneous
  Country: FR (occurrence: FR)
  Receive Date: 20130408
  Receipt Date: 20130408
  Transmission Date: 20140414
  Serious: Yes (Hospitalization, Other)
  Sender: FDA-Public Use
  Company Number: FR-PFIZER INC-2013108894

PATIENT
  Age: 79 Year
  Sex: Male

DRUGS (9)
  1. CORDARONE [Suspect]
     Indication: VENTRICULAR ARRHYTHMIA
     Dosage: 1 DOSE FORM, UNK
     Route: 048
     Dates: start: 201104
  2. DEPAKINE CHRONO [Concomitant]
     Dosage: UNK
  3. PLAVIX [Concomitant]
     Dosage: UNK
  4. INEXIUM [Concomitant]
     Dosage: UNK
  5. LASILIX [Concomitant]
     Dosage: UNK
  6. ZITHROMAX [Concomitant]
     Dosage: UNK
  7. SYMBICORT [Concomitant]
     Dosage: UNK
  8. NOVONORM [Concomitant]
     Dosage: UNK
     Dates: start: 201212
  9. LANTUS [Concomitant]
     Dosage: UNK

REACTIONS (2)
  - Hypothyroidism [Recovered/Resolved with Sequelae]
  - Fall [Unknown]
